FAERS Safety Report 9100731 (Version 3)
Quarter: 2014Q1

REPORT INFORMATION
  Report Type: Spontaneous
  Country: FR (occurrence: FR)
  Receive Date: 20130215
  Receipt Date: 20140110
  Transmission Date: 20141002
  Serious: Yes (Life-Threatening, Hospitalization)
  Sender: FDA-Public Use
  Company Number: FR-ASTRAZENECA-2013SE08641

PATIENT
  Age: 7625 Day
  Sex: Male

DRUGS (3)
  1. INEXIUM [Suspect]
     Indication: GASTROOESOPHAGEAL REFLUX DISEASE
     Route: 048
     Dates: start: 20121228, end: 20121229
  2. SINGULAIR [Suspect]
     Indication: ASTHMA
     Route: 055
     Dates: start: 20121228, end: 20121229
  3. AIROMIR [Suspect]
     Indication: ASTHMA
     Route: 055
     Dates: start: 20121228, end: 20121229

REACTIONS (3)
  - Pancreatitis [Recovering/Resolving]
  - Respiratory distress [Unknown]
  - Hepatocellular injury [Unknown]
